FAERS Safety Report 25714087 (Version 4)
Quarter: 2025Q4

REPORT INFORMATION
  Report Type: Report from Study
  Country: CN (occurrence: None)
  Receive Date: 20250822
  Receipt Date: 20251222
  Transmission Date: 20260118
  Serious: Yes (Hospitalization)
  Sender: JIANGSU HANSOH PHARMACEUTICAL GROUP CO., LTD.
  Company Number: CN-Hansoh-20252190013203

PATIENT
  Age: 73 Year
  Sex: Male
  Weight: 51.5 kg

DRUGS (8)
  1. PEMETREXED DISODIUM [Suspect]
     Active Substance: PEMETREXED DISODIUM
     Indication: Lung adenocarcinoma stage IV
     Dosage: 500MG/M2,EVERY 3 WEEKS
     Route: 041
     Dates: start: 20250423, end: 20250627
  2. PEMETREXED DISODIUM [Suspect]
     Active Substance: PEMETREXED DISODIUM
     Dosage: 500MG/M2,EVERY 3 WEEKS
     Route: 041
     Dates: start: 20250720, end: 20250811
  3. INVESTIGATIONAL PRODUCT [Suspect]
     Active Substance: INVESTIGATIONAL PRODUCT
     Indication: Lung adenocarcinoma stage IV
     Dosage: 400 MG, QD
     Route: 048
     Dates: start: 20250423, end: 20250627
  4. INVESTIGATIONAL PRODUCT [Suspect]
     Active Substance: INVESTIGATIONAL PRODUCT
     Dosage: 400 MG, QD
     Route: 048
     Dates: start: 20250720, end: 20250811
  5. ERIBULIN [Suspect]
     Active Substance: ERIBULIN
     Indication: Lung adenocarcinoma stage IV
     Dosage: 20MG/KG,EVERY 3 WEEKS
     Route: 041
     Dates: start: 20250423, end: 20250627
  6. ERIBULIN [Suspect]
     Active Substance: ERIBULIN
     Dosage: 20MG/KG,EVERY 3 WEEKS
     Route: 041
     Dates: start: 20250720, end: 20250811
  7. CARBOPLATIN [Suspect]
     Active Substance: CARBOPLATIN
     Indication: Lung adenocarcinoma stage IV
     Dosage: 20MG/KG,EVERY 3 WEEKS
     Route: 041
     Dates: start: 20250423, end: 20250627
  8. CARBOPLATIN [Suspect]
     Active Substance: CARBOPLATIN
     Dosage: 20MG/KG,EVERY 3 WEEKS
     Route: 041
     Dates: start: 20250720, end: 20250811

REACTIONS (2)
  - Aspartate aminotransferase increased [Recovered/Resolved]
  - Blood bilirubin increased [Recovered/Resolved]

NARRATIVE: CASE EVENT DATE: 20250604
